FAERS Safety Report 5779468-4 (Version None)
Quarter: 2008Q2

REPORT INFORMATION
  Report Type: 
  Country: None (occurrence: None)
  Receive Date: 20080619
  Receipt Date: 20071025
  Transmission Date: 20081010
  Serious: No
  Sender: FDA-Public Use
  Company Number: US-ASTRAZENECA-2007UW24817

PATIENT
  Age: 62 Year
  Sex: Male
  Weight: 83.9 kg

DRUGS (5)
  1. ATACAND [Suspect]
     Dosage: 3/4 OF A TABLET
     Route: 048
     Dates: start: 20060101
  2. NORVASC [Concomitant]
     Route: 048
  3. ALLOPURINOL [Concomitant]
     Route: 048
  4. LYCOPENE [Concomitant]
  5. ASPIRIN [Concomitant]

REACTIONS (2)
  - BLOOD TRIGLYCERIDES INCREASED [None]
  - LOW DENSITY LIPOPROTEIN DECREASED [None]
